FAERS Safety Report 7889116-5 (Version None)
Quarter: 2011Q4

REPORT INFORMATION
  Report Type: 
  Country: None (occurrence: None)
  Receive Date: 20111103
  Receipt Date: 20111025
  Transmission Date: 20120403
  Serious: Yes (Other)
  Sender: FDA-Public Use
  Company Number: JP-BRISTOL-MYERS SQUIBB COMPANY-16125577

PATIENT
  Age: 1 Day
  Sex: Female
  Weight: 2 kg

DRUGS (3)
  1. CISPLATIN [Suspect]
     Route: 064
  2. BLEO [Suspect]
     Route: 064
  3. VEPESID [Suspect]
     Route: 064

REACTIONS (1)
  - RESPIRATORY DISTRESS [None]
